FAERS Safety Report 7268508-1 (Version None)
Quarter: 2010Q4

REPORT INFORMATION
  Report Type: 
  Country: None (occurrence: None)
  Receive Date: 20101206
  Receipt Date: 20101008
  Transmission Date: 20110411
  Serious: No
  Sender: FDA-Public Use
  Company Number: 2010SP054166

PATIENT
  Sex: Male

DRUGS (2)
  1. SAPHRIS [Suspect]
     Indication: SCHIZOAFFECTIVE DISORDER
     Dosage: 20 MG; 25 MG
  2. SAPHRIS [Suspect]
     Indication: SCHIZOPHRENIA
     Dosage: 20 MG; 25 MG

REACTIONS (2)
  - DYSPHAGIA [None]
  - OVERDOSE [None]
